FAERS Safety Report 11840234 (Version 1)
Quarter: 2015Q4

REPORT INFORMATION
  Report Type: Spontaneous
  Country: DK (occurrence: DK)
  Receive Date: 20151216
  Receipt Date: 20151216
  Transmission Date: 20160305
  Serious: Yes (Hospitalization)
  Sender: FDA-Public Use
  Company Number: DK-PFIZER INC-2015428324

PATIENT
  Age: 44 Year
  Sex: Female

DRUGS (3)
  1. SALAZOPYRIN EN-TABS [Suspect]
     Active Substance: SULFASALAZINE
     Indication: SPONDYLITIS
     Dosage: 1 G, 2X/DAY
     Route: 048
     Dates: start: 20151007, end: 20151122
  2. IBUMETIN [Concomitant]
     Active Substance: IBUPROFEN
  3. PARACETAMOL B. BRAUN [Concomitant]
     Active Substance: ACETAMINOPHEN

REACTIONS (7)
  - Prothrombin time shortened [Recovering/Resolving]
  - Product use issue [Recovered/Resolved]
  - Hepatic failure [Recovering/Resolving]
  - Vomiting [Recovering/Resolving]
  - Pyrexia [Recovering/Resolving]
  - Alanine aminotransferase increased [Recovering/Resolving]
  - Leukocytosis [Recovering/Resolving]

NARRATIVE: CASE EVENT DATE: 20151007
